FAERS Safety Report 18057415 (Version 2)
Quarter: 2020Q3

REPORT INFORMATION
  Report Type: Spontaneous
  Country: BR (occurrence: BR)
  Receive Date: 20200722
  Receipt Date: 20200824
  Transmission Date: 20201103
  Serious: Yes (Death, Other)
  Sender: FDA-Public Use
  Company Number: NVSC2020BR206554

PATIENT
  Sex: Male

DRUGS (7)
  1. MIDAZOLAM. [Suspect]
     Active Substance: MIDAZOLAM
     Indication: FOETAL EXPOSURE DURING PREGNANCY
     Dosage: UNK
     Route: 064
  2. HYDROXYCHLOROQUINE [Suspect]
     Active Substance: HYDROXYCHLOROQUINE
     Indication: FOETAL EXPOSURE DURING PREGNANCY
     Dosage: UNK
     Route: 064
  3. OSELTAMIVIR [Suspect]
     Active Substance: OSELTAMIVIR
     Indication: FOETAL EXPOSURE DURING PREGNANCY
     Dosage: UNK
     Route: 064
  4. FENTANYL. [Suspect]
     Active Substance: FENTANYL
     Indication: FOETAL EXPOSURE DURING PREGNANCY
     Dosage: UNK
     Route: 064
  5. NOREPINEPHRINE. [Suspect]
     Active Substance: NOREPINEPHRINE
     Indication: FOETAL EXPOSURE DURING PREGNANCY
     Dosage: UNK
     Route: 064
  6. CEFTRIAXONE. [Suspect]
     Active Substance: CEFTRIAXONE
     Indication: FOETAL EXPOSURE DURING PREGNANCY
     Dosage: UNK
     Route: 064
  7. AZITHROMYCIN ANHYDROUS. [Suspect]
     Active Substance: AZITHROMYCIN ANHYDROUS
     Indication: FOETAL EXPOSURE DURING PREGNANCY
     Dosage: UNK
     Route: 064

REACTIONS (4)
  - Death neonatal [Fatal]
  - Low birth weight baby [Unknown]
  - Premature baby [Unknown]
  - Foetal exposure during pregnancy [Unknown]
